FAERS Safety Report 25188928 (Version 3)
Quarter: 2025Q2

REPORT INFORMATION
  Report Type: Report from Study
  Country: FI (occurrence: FI)
  Receive Date: 20250411
  Receipt Date: 20250520
  Transmission Date: 20250716
  Serious: Yes (Other)
  Sender: MYLAN
  Company Number: FI-MYLANLABS-2025M1029934

PATIENT
  Age: 21 Year
  Sex: Female

DRUGS (3)
  1. CLOZAPINE [Suspect]
     Active Substance: CLOZAPINE
     Indication: Psychotic disorder
     Dosage: 225 MILLIGRAM, BID
     Dates: start: 20250320, end: 20250402
  2. QUETIAPINE FUMARATE [Concomitant]
     Active Substance: QUETIAPINE FUMARATE
     Indication: Insomnia
     Dosage: UNK, PM
  3. POLYETHYLENE GLYCOL 4000 [Concomitant]
     Active Substance: POLYETHYLENE GLYCOL 4000
     Indication: Constipation
     Dosage: UNK, PM
     Dates: start: 20250326

REACTIONS (18)
  - Electrocardiogram T wave inversion [Recovered/Resolved]
  - Myocarditis [Not Recovered/Not Resolved]
  - Pneumonia [Unknown]
  - Off label use [Recovered/Resolved]
  - Influenza [Recovered/Resolved]
  - C-reactive protein increased [Recovered/Resolved]
  - Fibrin D dimer increased [Unknown]
  - Troponin I increased [Recovered/Resolved]
  - Troponin T increased [Not Recovered/Not Resolved]
  - Electrocardiogram change [Unknown]
  - Pleural effusion [Unknown]
  - Pyrexia [Recovered/Resolved]
  - Diarrhoea [Recovered/Resolved]
  - Tachycardia [Unknown]
  - White blood cell count increased [Recovered/Resolved]
  - Eosinophilia [Not Recovered/Not Resolved]
  - Neutrophil count increased [Recovered/Resolved]
  - Platelet count increased [Unknown]

NARRATIVE: CASE EVENT DATE: 20250101
